FAERS Safety Report 7529947-4 (Version None)
Quarter: 2011Q2

REPORT INFORMATION
  Report Type: 
  Country: None (occurrence: None)
  Receive Date: 20110607
  Receipt Date: 20110606
  Transmission Date: 20111010
  Serious: Yes (Life-Threatening, Hospitalization, Other)
  Sender: FDA-Public Use
  Company Number: GB-AMGEN-KDC442752

PATIENT
  Age: 77 Year
  Sex: Female

DRUGS (19)
  1. ACETAMINOPHEN [Concomitant]
     Dosage: 1 G, PRN
     Dates: start: 20100728
  2. TPN [Concomitant]
     Dosage: UNK UNK, UNK
     Dates: start: 20100723
  3. DEXAMETHASONE [Concomitant]
     Dosage: UNK UNK, UNK
     Dates: start: 20100707
  4. SUCRALFATE [Concomitant]
     Dosage: 15 ML, QD
  5. CAPECITABINE [Suspect]
     Dosage: UNK UNK, UNK
     Dates: start: 20100707
  6. OXALIPLATIN [Suspect]
     Dosage: UNK UNK, UNK
     Dates: start: 20100707
  7. METOCLOPRAMIDE HYDROCHLORIDE [Concomitant]
     Dosage: 10 MG, PRN
     Dates: start: 20100707
  8. LEVOTHYROXINE SODIUM [Concomitant]
     Dosage: 75 A?G, QD
     Dates: start: 19830101
  9. DIPROBASE [Concomitant]
     Dosage: UNK UNK, BID
     Route: 061
     Dates: start: 20100728
  10. EPIRUBICIN [Suspect]
     Dosage: UNK UNK, UNK
     Dates: start: 20100707
  11. UNSPECIFIED INTRAVENOUS FLUIDS [Concomitant]
     Dosage: UNK UNK, UNK
     Dates: start: 20100927
  12. ENSURE [Concomitant]
     Dosage: UNK UNK, UNK
     Dates: start: 20100628
  13. ONDANSETRON [Concomitant]
     Dosage: 8 MG, UNK
     Route: 042
     Dates: start: 20100707
  14. PANITUMUMAB [Suspect]
     Indication: OESOPHAGEAL CARCINOMA
     Dosage: UNK
     Dates: start: 20100707
  15. LOPERAMIDE [Concomitant]
     Dosage: UNK UNK, PRN
     Dates: start: 20100723
  16. LANSOPRAZOLE [Concomitant]
     Dosage: 30 MG, QD
     Dates: start: 20100628
  17. CYCLIZINE [Concomitant]
     Dosage: UNK UNK, UNK
     Dates: start: 20100728
  18. MAGNESIUM SULFATE [Concomitant]
     Dosage: UNK UNK, UNK
     Dates: start: 20100927
  19. FLUCONAZOLE [Concomitant]
     Dosage: 50 MG, UNK
     Dates: start: 20100723, end: 20100729

REACTIONS (4)
  - VOMITING [None]
  - PNEUMONIA ASPIRATION [None]
  - DIARRHOEA [None]
  - HYPOKALAEMIA [None]
